FAERS Safety Report 18944637 (Version 1)
Quarter: 2021Q1

REPORT INFORMATION
  Report Type: Spontaneous
  Country: DE (occurrence: DE)
  Receive Date: 20210226
  Receipt Date: 20210226
  Transmission Date: 20210420
  Serious: Yes (Hospitalization)
  Sender: FDA-Public Use
  Company Number: DE-TEVA-2021-DE-1883310

PATIENT
  Age: 4 Year
  Sex: Female
  Weight: 11 kg

DRUGS (5)
  1. LEVETIRACETAM GRANULAT [Concomitant]
     Indication: LENNOX-GASTAUT SYNDROME
     Dosage: 750 MILLIGRAM DAILY;
     Route: 048
  2. TOPIRAMAT [Concomitant]
     Active Substance: TOPIRAMATE
     Indication: LENNOX-GASTAUT SYNDROME
     Dosage: 150 MILLIGRAM DAILY;
     Route: 048
  3. COLECALCIFEROL [Concomitant]
     Active Substance: CHOLECALCIFEROL
     Indication: PROPHYLAXIS
     Dosage: 1000 IU (INTERNATIONAL UNIT) DAILY;
     Route: 048
  4. LEVOCARNITIN 1 G/ML [Concomitant]
     Dosage: 2.4 ML DAILY;
     Route: 048
     Dates: end: 20180910
  5. VALPROINSAEURE [Suspect]
     Active Substance: VALPROIC ACID
     Indication: LENNOX-GASTAUT SYNDROME
     Dosage: 900 MILLIGRAM DAILY;
     Route: 048
     Dates: start: 20170614, end: 20180903

REACTIONS (4)
  - Weight decreased [Recovering/Resolving]
  - Hyperammonaemia [Recovering/Resolving]
  - Seizure [Recovering/Resolving]
  - Hypothyroidism [Recovering/Resolving]

NARRATIVE: CASE EVENT DATE: 20180903
